FAERS Safety Report 12722890 (Version 1)
Quarter: 2016Q3

REPORT INFORMATION
  Report Type: Report from Study
  Country: US (occurrence: US)
  Receive Date: 20160907
  Receipt Date: 20160907
  Transmission Date: 20161109
  Serious: Yes (Hospitalization)
  Sender: FDA-Public Use
  Company Number: US-AMGEN-USASL2016118751

PATIENT
  Age: 55 Year
  Sex: Male
  Weight: 79.37 kg

DRUGS (2)
  1. METHOTREXATE. [Concomitant]
     Active Substance: METHOTREXATE
     Dosage: UNK
  2. ENBREL [Suspect]
     Active Substance: ETANERCEPT
     Indication: RHEUMATOID ARTHRITIS
     Dosage: UNK UNK, QWK
     Route: 065

REACTIONS (11)
  - Vomiting [Unknown]
  - Accidental overdose [Unknown]
  - Abdominal mass [Unknown]
  - Pneumonia [Unknown]
  - Headache [Unknown]
  - Decreased immune responsiveness [Unknown]
  - Abnormal behaviour [Unknown]
  - Mass [Unknown]
  - Muscle spasms [Unknown]
  - Activities of daily living impaired [Unknown]
  - Weight decreased [Unknown]

NARRATIVE: CASE EVENT DATE: 201608
